FAERS Safety Report 19551498 (Version 1)
Quarter: 2021Q3

REPORT INFORMATION
  Report Type: Spontaneous
  Country: CA (occurrence: CA)
  Receive Date: 20210714
  Receipt Date: 20210714
  Transmission Date: 20211014
  Serious: Yes (Life-Threatening, Hospitalization)
  Sender: FDA-Public Use
  Company Number: CA-PFIZER INC-2021806318

PATIENT
  Sex: Male

DRUGS (7)
  1. ADRIAMYCIN [Suspect]
     Active Substance: DOXORUBICIN HYDROCHLORIDE
     Dosage: UNK
     Route: 065
  2. METOCLOPRAMIDE. [Concomitant]
     Active Substance: METOCLOPRAMIDE
     Dosage: UNK
  3. DACARBAZINE. [Suspect]
     Active Substance: DACARBAZINE
     Dosage: UNK
     Route: 065
  4. VINBLASTINE [Suspect]
     Active Substance: VINBLASTINE
     Dosage: UNK
     Route: 065
  5. ONDANSETRON [Concomitant]
     Active Substance: ONDANSETRON
     Dosage: UNK
  6. BLEOMYCIN SULFATE [Suspect]
     Active Substance: BLEOMYCIN SULFATE
     Dosage: UNK
     Route: 065
  7. EMEND [Concomitant]
     Active Substance: APREPITANT
     Dosage: UNK

REACTIONS (1)
  - Febrile neutropenia [Unknown]
